FAERS Safety Report 8945184 (Version 2)
Quarter: 2013Q1

REPORT INFORMATION
  Report Type: Spontaneous
  Country: CH (occurrence: CH)
  Receive Date: 20121205
  Receipt Date: 20130115
  Transmission Date: 20140127
  Serious: Yes (Other)
  Sender: FDA-Public Use
  Company Number: CH-TEVA-369411ISR

PATIENT
  Age: 17 Year
  Sex: Female

DRUGS (2)
  1. ISOTRETINOIN [Suspect]
     Dosage: INFORMATION AS PROVIDED BY THE PATIENT IS ONLY APPROXIMATE
     Route: 048
     Dates: start: 201207, end: 20120905
  2. DAPSON [Suspect]
     Indication: ACNE
     Dosage: 50 MG ON 6 DAYS PER WEEK
     Dates: start: 201207, end: 201209

REACTIONS (1)
  - Pregnancy [Not Recovered/Not Resolved]
